FAERS Safety Report 4893755-3 (Version None)
Quarter: 2005Q4

REPORT INFORMATION
  Report Type: 
  Country: None (occurrence: None)
  Receive Date: 20051223
  Receipt Date: 20051111
  Transmission Date: 20060501
  Serious: No
  Sender: FDA-Public Use
  Company Number: 2005PV004385

PATIENT
  Age: 71 Year
  Sex: Female
  Weight: 129.7287 kg

DRUGS (5)
  1. SYMLIN [Suspect]
     Indication: DIABETES MELLITUS NON-INSULIN-DEPENDENT
     Dosage: 120 MCG; SC
     Route: 058
     Dates: start: 20051017
  2. HUMALOG [Concomitant]
  3. LANTUS [Concomitant]
  4. PREDNISONE [Concomitant]
  5. LACTOBACILLUS [Concomitant]

REACTIONS (12)
  - BREAST PAIN [None]
  - CHEST PAIN [None]
  - DIARRHOEA [None]
  - DYSPEPSIA [None]
  - FURUNCLE [None]
  - HEADACHE [None]
  - HYPERHIDROSIS [None]
  - HYPOGLYCAEMIA [None]
  - NAUSEA [None]
  - PRURITUS [None]
  - RASH PRURITIC [None]
  - STOMACH DISCOMFORT [None]
